FAERS Safety Report 5988363-7 (Version None)
Quarter: 2008Q4

REPORT INFORMATION
  Report Type: 
  Country: None (occurrence: None)
  Receive Date: 20081204
  Receipt Date: 20081121
  Transmission Date: 20090506
  Serious: Yes (Hospitalization)
  Sender: FDA-Public Use
  Company Number: GXKR2008GB11126

PATIENT
  Age: 44 Year
  Sex: Female

DRUGS (13)
  1. CITALOPRAM HYDROBROMIDE [Suspect]
     Indication: DEPRESSION
     Dosage: 20 MG
  2. METHYLENE BLUE (NGX) (METHYLENE BLUE) UNKNOWN [Suspect]
     Indication: SCAN PARATHYROID
     Dosage: 560 MG IN 500 ML SALINE OVER TWO HOURS, INFUSION
  3. ASPIRIN [Concomitant]
  4. SIMVASTATIN [Concomitant]
  5. ATENOLOL [Concomitant]
  6. ISOSORBIDE MONONITRATE [Concomitant]
  7. BENDROFLUMETHIAZIDE (BENDROFLUMETHIAZIDE) [Concomitant]
  8. FELODIPINE [Concomitant]
  9. PROPOFOL [Concomitant]
  10. REMIFENTANIL (REMIFENTANIL) [Concomitant]
  11. ROCURONIUM BROMIDE (ROCURONIUM BROMIDE) [Concomitant]
  12. DEXAMETHASONE TAB [Concomitant]
  13. MORPHINE [Concomitant]

REACTIONS (7)
  - DRUG INTERACTION [None]
  - GLASGOW COMA SCALE ABNORMAL [None]
  - MYOCLONUS [None]
  - PUPILLARY LIGHT REFLEX TESTS ABNORMAL [None]
  - SEROTONIN SYNDROME [None]
  - SPEECH DISORDER [None]
  - WHITE BLOOD CELL COUNT INCREASED [None]
